FAERS Safety Report 25951322 (Version 2)
Quarter: 2025Q4

REPORT INFORMATION
  Report Type: Spontaneous
  Country: GB (occurrence: GB)
  Receive Date: 20251023
  Receipt Date: 20251106
  Transmission Date: 20260118
  Serious: Yes (Other)
  Sender: ABBVIE
  Company Number: GB-ABBVIE-6513116

PATIENT
  Age: 18 Year

DRUGS (1)
  1. UPADACITINIB [Suspect]
     Active Substance: UPADACITINIB
     Indication: Inflammatory bowel disease
     Route: 048

REACTIONS (1)
  - Non-Hodgkin^s lymphoma [Unknown]
